FAERS Safety Report 5819215-0 (Version None)
Quarter: 2008Q3

REPORT INFORMATION
  Report Type: 
  Country: None (occurrence: None)
  Receive Date: 20080721
  Receipt Date: 20080721
  Transmission Date: 20090109
  Serious: Yes (Hospitalization)
  Sender: FDA-Public Use
  Company Number: None

PATIENT
  Age: 37 Year
  Sex: Male

DRUGS (1)
  1. LITHIUM CARBONATE [Suspect]
     Indication: BIPOLAR I DISORDER
     Dosage: TID PO
     Route: 048
     Dates: start: 20051117, end: 20080715

REACTIONS (7)
  - ALCOHOL USE [None]
  - ATRIOVENTRICULAR BLOCK FIRST DEGREE [None]
  - CONVULSION [None]
  - FALL [None]
  - HALLUCINATION [None]
  - MUSCULAR WEAKNESS [None]
  - TREMOR [None]
